FAERS Safety Report 4835733-6 (Version None)
Quarter: 2005Q4

REPORT INFORMATION
  Report Type: 
  Country: None (occurrence: None)
  Receive Date: 20051123
  Receipt Date: 20051111
  Transmission Date: 20060501
  Serious: Yes (Hospitalization)
  Sender: FDA-Public Use
  Company Number: US-JNJFOC-20051003512

PATIENT
  Sex: Female
  Weight: 75.3 kg

DRUGS (42)
  1. REMICADE [Suspect]
     Route: 042
  2. REMICADE [Suspect]
     Route: 042
  3. REMICADE [Suspect]
     Route: 042
  4. REMICADE [Suspect]
     Route: 042
  5. REMICADE [Suspect]
     Route: 042
  6. REMICADE [Suspect]
     Route: 042
  7. REMICADE [Suspect]
     Route: 042
  8. REMICADE [Suspect]
     Indication: RHEUMATOID ARTHRITIS
     Route: 042
  9. HYDROCHLOROTHIAZIDE [Concomitant]
     Route: 048
  10. FOSAMAX [Concomitant]
  11. FOSAMAX [Concomitant]
  12. FOLIC ACID [Concomitant]
     Route: 048
  13. COUMADIN [Concomitant]
     Route: 048
  14. COUMADIN [Concomitant]
     Route: 048
  15. ASPIRIN [Concomitant]
     Route: 048
  16. METHOTREXATE [Concomitant]
     Route: 048
  17. MACROBID [Concomitant]
  18. POTASSIUM CHLORIDE [Concomitant]
     Route: 048
  19. SOLU-MEDROL [Concomitant]
     Route: 040
  20. SOLU-MEDROL [Concomitant]
     Route: 040
  21. SOLU-MEDROL [Concomitant]
     Route: 040
  22. SOLU-MEDROL [Concomitant]
     Route: 040
  23. SOLU-MEDROL [Concomitant]
     Route: 040
  24. SOLU-MEDROL [Concomitant]
     Indication: PREMEDICATION
     Route: 040
  25. BENADRYL [Concomitant]
     Route: 040
  26. BENADRYL [Concomitant]
     Route: 040
  27. BENADRYL [Concomitant]
     Route: 040
  28. BENADRYL [Concomitant]
     Route: 040
  29. BENADRYL [Concomitant]
     Route: 040
  30. BENADRYL [Concomitant]
     Indication: PREMEDICATION
     Route: 040
  31. CIMETIDINE [Concomitant]
     Route: 048
  32. CIMETIDINE [Concomitant]
     Route: 048
  33. CIMETIDINE [Concomitant]
     Route: 048
  34. CIMETIDINE [Concomitant]
     Indication: PREMEDICATION
     Route: 048
  35. PREDNISONE [Concomitant]
     Route: 048
  36. PREDNISONE [Concomitant]
     Route: 048
  37. PREDNISONE [Concomitant]
     Route: 048
  38. PREDNISONE [Concomitant]
     Route: 048
  39. PREDNISONE [Concomitant]
     Indication: PREMEDICATION
     Route: 048
  40. BENADRYL [Concomitant]
     Route: 048
  41. BENADRYL [Concomitant]
     Route: 048
  42. BENADRYL [Concomitant]
     Route: 048

REACTIONS (1)
  - ENDOMETRIAL CANCER [None]
